FAERS Safety Report 5899110-1 (Version None)
Quarter: 2008Q3

REPORT INFORMATION
  Report Type: 
  Country: None (occurrence: None)
  Receive Date: 20080917
  Receipt Date: 20080718
  Transmission Date: 20090109
  Serious: Yes (Other)
  Sender: FDA-Public Use
  Company Number: PHEH2008US04554

PATIENT
  Age: 75 Year
  Sex: Female
  Weight: 74.4 kg

DRUGS (11)
  1. FEMARA [Suspect]
     Indication: BREAST CANCER
     Dosage: 2.5 MG, QD, ORAL ; 2.5 MG, ORAL
     Route: 048
     Dates: start: 20070329, end: 20080101
  2. FEMARA [Suspect]
     Indication: BREAST CANCER
     Dosage: 2.5 MG, QD, ORAL ; 2.5 MG, ORAL
     Route: 048
     Dates: start: 20080201, end: 20080401
  3. ZETIA [Suspect]
     Dates: end: 20080401
  4. ACETAMINOPHEN [Concomitant]
  5. PROTONIX [Concomitant]
  6. FOSAMAX [Concomitant]
  7. MAALOX (ALGELDRATE, MAGNESIUM HYDROXIDE) [Concomitant]
  8. CALCIUM (CALCIUM) [Concomitant]
  9. ASPIRIN [Concomitant]
  10. MVI (VITAMINS NOS) [Concomitant]
  11. IBUPROFEN [Concomitant]

REACTIONS (12)
  - ARTHRALGIA [None]
  - CATARACT [None]
  - CATARACT OPERATION [None]
  - COUGH [None]
  - DIARRHOEA [None]
  - DIZZINESS [None]
  - FIBROMYALGIA [None]
  - GAIT DISTURBANCE [None]
  - GASTROOESOPHAGEAL REFLUX DISEASE [None]
  - NODULE ON EXTREMITY [None]
  - PAIN IN EXTREMITY [None]
  - PRURITUS [None]
